FAERS Safety Report 6003022-2 (Version None)
Quarter: 2008Q4

REPORT INFORMATION
  Report Type: 
  Country: None (occurrence: None)
  Receive Date: 20081212
  Receipt Date: 20081202
  Transmission Date: 20090506
  Serious: Yes (Life-Threatening)
  Sender: FDA-Public Use
  Company Number: 6047472

PATIENT
  Age: 65 Year
  Sex: Male

DRUGS (9)
  1. BISOPROLOL FUMARATE [Suspect]
     Indication: CARDIAC FAILURE
     Dosage: NOT REPORTED
     Route: 048
     Dates: start: 20080320
  2. ATORVASTATIN CALCIUM [Suspect]
     Indication: HYPERCHOLESTEROLAEMIA
     Dosage: 1 DOSAGE FORMS ( 1 DOSAGE FORMS, 1 IN 1 D)
     Route: 048
     Dates: start: 20080320
  3. TRIATEC(1.25 MG, TABLET) (RAMIPRIL) [Concomitant]
  4. PREVISCAN (TABLET) (FLUINDIONE) [Concomitant]
  5. FLIXOTIDE(PRESSURISED INHALATION) (FLUTICASONE PROPIONATE) [Concomitant]
  6. FORADIL(PRESSURISED INHALATION) (FUROSEMIDE) [Concomitant]
  7. LASILIX (20 MG, TABLET) (FUROSEMIDE) [Concomitant]
  8. VENTOLINE (PRESSURISED INHALATION) (SALBUTAMOL) [Concomitant]
  9. XYZALL (TABLET) (LEVOCETIRIZINE) [Concomitant]

REACTIONS (6)
  - ATRIAL FIBRILLATION [None]
  - DERMATITIS EXFOLIATIVE [None]
  - HAEMODIALYSIS [None]
  - HEPATIC ENCEPHALOPATHY [None]
  - HEPATITIS FULMINANT [None]
  - RENAL FAILURE ACUTE [None]
